FAERS Safety Report 13954288 (Version 2)
Quarter: 2017Q4

REPORT INFORMATION
  Report Type: Report from Study
  Country: US (occurrence: US)
  Receive Date: 20170911
  Receipt Date: 20171115
  Transmission Date: 20180320
  Serious: No
  Sender: FDA-Public Use
  Company Number: PHEH2017US028789

PATIENT
  Sex: Female

DRUGS (2)
  1. COSENTYX [Suspect]
     Active Substance: SECUKINUMAB
     Indication: PSORIASIS
     Dosage: 300 MG, QW4 (150MG/ML PEN INJ)
     Route: 058
     Dates: start: 20170526
  2. COSENTYX [Suspect]
     Active Substance: SECUKINUMAB
     Dosage: 150 MG, QMO (EVERY FOUR WEEKS)
     Route: 058
     Dates: start: 20170602

REACTIONS (3)
  - Pain in extremity [Unknown]
  - Incorrect dose administered [Unknown]
  - Inflammation [Unknown]
